FAERS Safety Report 21375227 (Version 2)
Quarter: 2022Q4

REPORT INFORMATION
  Report Type: Report from Study
  Country: CA (occurrence: CA)
  Receive Date: 20220926
  Receipt Date: 20221027
  Transmission Date: 20230113
  Serious: Yes (Other)
  Sender: FDA-Public Use
  Company Number: CA-JNJFOC-20220939798

PATIENT
  Age: 77 Year
  Sex: Female

DRUGS (19)
  1. SELEXIPAG [Suspect]
     Active Substance: SELEXIPAG
     Indication: Pulmonary hypertension
     Dosage: 400 MCG THEN REDUCED TO 200 MCG
     Route: 048
     Dates: start: 20220905
  2. SELEXIPAG [Suspect]
     Active Substance: SELEXIPAG
     Route: 048
  3. BUPRENORPHINE\NALOXONE [Concomitant]
     Active Substance: BUPRENORPHINE\NALOXONE
  4. SENNOSIDES [Concomitant]
     Active Substance: SENNOSIDES
  5. ACETAMINOPHEN [Concomitant]
     Active Substance: ACETAMINOPHEN
  6. LASIX [Concomitant]
     Active Substance: FUROSEMIDE
  7. OXYGEN [Concomitant]
     Active Substance: OXYGEN
  8. VITAMIN C [Concomitant]
     Active Substance: ASCORBIC ACID
     Dosage: OD
  9. GABAPENTIN [Concomitant]
     Active Substance: GABAPENTIN
     Dosage: TWICE DAILY
  10. OXYCODONE [Concomitant]
     Active Substance: OXYCODONE
  11. POTASSIUM CHLORIDE [Concomitant]
     Active Substance: POTASSIUM CHLORIDE
  12. CALCIUM CARBONATE [Concomitant]
     Active Substance: CALCIUM CARBONATE
  13. VITAMIN D3 [Concomitant]
     Active Substance: CHOLECALCIFEROL
  14. TADALAFIL [Concomitant]
     Active Substance: TADALAFIL
  15. RABEPRAZOLE [Concomitant]
     Active Substance: RABEPRAZOLE
  16. AMBRISENTAN [Concomitant]
     Active Substance: AMBRISENTAN
  17. ADCIRCA [Concomitant]
     Active Substance: TADALAFIL
  18. ASPIRIN [Concomitant]
     Active Substance: ASPIRIN
  19. VITAMIN E [Concomitant]
     Active Substance: .ALPHA.-TOCOPHEROL

REACTIONS (4)
  - Dyspnoea [Unknown]
  - Asthenia [Unknown]
  - Malaise [Unknown]
  - Crying [Unknown]

NARRATIVE: CASE EVENT DATE: 20220901
